FAERS Safety Report 9803443 (Version 1)
Quarter: 2014Q1

REPORT INFORMATION
  Report Type: Report from Study
  Country: NL (occurrence: NL)
  Receive Date: 20140108
  Receipt Date: 20140108
  Transmission Date: 20141002
  Serious: Yes (Hospitalization)
  Sender: FDA-Public Use
  Company Number: PHHY2014NL001609

PATIENT
  Age: 78 Year
  Sex: Female

DRUGS (2)
  1. ZOMETA [Suspect]
     Indication: BREAST CANCER
     Dosage: 4 MG/ 100 ML, ONCE EVERY 4 WEEKS
     Route: 042
  2. ZOMETA [Suspect]
     Dosage: 4 MG/ 100 ML, ONCE EVERY 4 WEEKS
     Route: 042
     Dates: start: 20131211

REACTIONS (2)
  - Cardiac discomfort [Unknown]
  - Chest pain [Unknown]
